FAERS Safety Report 19002767 (Version 1)
Quarter: 2021Q1

REPORT INFORMATION
  Report Type: Spontaneous
  Country: US (occurrence: US)
  Receive Date: 20210312
  Receipt Date: 20210312
  Transmission Date: 20210420
  Serious: No
  Sender: FDA-Public Use
  Company Number: None

PATIENT
  Age: 22 Year
  Sex: Male
  Weight: 47.25 kg

DRUGS (1)
  1. ATOMOXETINE 80 MG CAP MFG: NORTHSTAR GENERIC FOR STRATTERA 80 MG [Suspect]
     Active Substance: ATOMOXETINE HYDROCHLORIDE
     Indication: ATTENTION DEFICIT HYPERACTIVITY DISORDER
     Dosage: ;?
     Route: 048
     Dates: start: 20210227, end: 20210312

REACTIONS (1)
  - Diplopia [None]

NARRATIVE: CASE EVENT DATE: 20210227
